FAERS Safety Report 7272166-X (Version None)
Quarter: 2011Q1

REPORT INFORMATION
  Report Type: 
  Country: None (occurrence: None)
  Receive Date: 20110203
  Receipt Date: 20110120
  Transmission Date: 20110831
  Serious: Yes (Hospitalization, Other)
  Sender: FDA-Public Use
  Company Number: PHHY2011BE04921

PATIENT
  Age: 83 Year
  Sex: Female

DRUGS (7)
  1. METFORMIN HCL [Concomitant]
     Indication: TYPE 2 DIABETES MELLITUS
     Dosage: UNK
     Dates: start: 20050101
  2. CLONIDINE HCL [Concomitant]
     Dosage: UNK
     Dates: start: 20100901
  3. DIOVAN [Suspect]
     Indication: HYPERTENSION
     Dosage: 80 MG, UNK
     Route: 048
     Dates: start: 20080101
  4. VASEXTEN [Suspect]
     Indication: HYPERTENSION
  5. DIOVAN [Suspect]
     Dosage: 160 MG, UNK
     Route: 048
  6. DIOVAN [Suspect]
     Dosage: 80 MG, UNK
     Route: 048
  7. MAXSOTEN [Concomitant]
     Indication: HYPERTENSION
     Dosage: 10 MG/25 MG

REACTIONS (7)
  - CARDIOMEGALY [None]
  - STRESS [None]
  - OEDEMA PERIPHERAL [None]
  - BLOOD PRESSURE INCREASED [None]
  - URINARY TRACT INFECTION [None]
  - RENAL IMPAIRMENT [None]
  - MALAISE [None]
